FAERS Safety Report 5352528-8 (Version None)
Quarter: 2007Q2

REPORT INFORMATION
  Report Type: 
  Country: None (occurrence: None)
  Receive Date: 20070607
  Receipt Date: 20070607
  Transmission Date: 20071010
  Serious: Yes (Hospitalization)
  Sender: FDA-Public Use
  Company Number: None

PATIENT
  Age: 74 Year
  Sex: Female
  Weight: 57.1532 kg

DRUGS (8)
  1. PHOSPHOSODA GINGER LEMON [Suspect]
     Indication: COLONOSCOPY
     Dosage: 45 ML;X1;PO
     Route: 048
     Dates: start: 20050309, end: 20050310
  2. POTASSIUM CHLORIDE [Concomitant]
  3. HYDROCHLOROTHIAZIDE [Concomitant]
  4. DIOVAN [Concomitant]
  5. METOPROLOL SUCCINATE [Concomitant]
  6. DYNACIRC [Concomitant]
  7. PROTONIX [Concomitant]
  8. METAMUCIL [Concomitant]

REACTIONS (12)
  - ABDOMINAL DISCOMFORT [None]
  - ANOREXIA [None]
  - ANXIETY [None]
  - DIVERTICULUM INTESTINAL [None]
  - FATIGUE [None]
  - HYPOMAGNESAEMIA [None]
  - NAUSEA [None]
  - NEPHROCALCINOSIS [None]
  - REFUSAL OF TREATMENT BY PATIENT [None]
  - RENAL FAILURE ACUTE [None]
  - RENAL FAILURE CHRONIC [None]
  - WEIGHT DECREASED [None]
